FAERS Safety Report 15456362 (Version 4)
Quarter: 2018Q4

REPORT INFORMATION
  Report Type: Report from Study
  Country: CO (occurrence: CO)
  Receive Date: 20181002
  Receipt Date: 20181102
  Transmission Date: 20190204
  Serious: Yes (Hospitalization)
  Sender: FDA-Public Use
  Company Number: PHHY2016CO164306

PATIENT
  Age: 61 Year
  Sex: Female
  Weight: 52 kg

DRUGS (8)
  1. TASIGNA [Suspect]
     Active Substance: NILOTINIB
     Indication: CHRONIC MYELOID LEUKAEMIA
     Dosage: 800 MG, QD (400 MG EVERY 12 HOURS)
     Route: 048
     Dates: start: 20150321
  2. LOSARTAN. [Suspect]
     Active Substance: LOSARTAN
     Indication: PRODUCT USED FOR UNKNOWN INDICATION
     Route: 065
  3. TASIGNA [Suspect]
     Active Substance: NILOTINIB
     Dosage: 150 MG, EVERY 12 HOURS
     Route: 048
     Dates: start: 20161004
  4. TASIGNA [Suspect]
     Active Substance: NILOTINIB
     Dosage: 400 MG, QD
     Route: 048
  5. METFORMIN [Suspect]
     Active Substance: METFORMIN HYDROCHLORIDE
     Indication: PRODUCT USED FOR UNKNOWN INDICATION
     Route: 065
  6. TASIGNA [Suspect]
     Active Substance: NILOTINIB
     Dosage: 200 MG, Q12H
     Route: 048
     Dates: start: 20160902
  7. GLIBENCLAMIDE [Concomitant]
     Active Substance: GLYBURIDE
     Indication: PRODUCT USED FOR UNKNOWN INDICATION
     Route: 065
  8. TASIGNA [Suspect]
     Active Substance: NILOTINIB
     Dosage: 400 MG IN THE MORNING AND 200 MG AT NIGHT
     Route: 048

REACTIONS (19)
  - Nausea [Unknown]
  - Eyelid ptosis [Unknown]
  - Depressed mood [Unknown]
  - Food refusal [Unknown]
  - Gastrointestinal wall thickening [Unknown]
  - Rash [Unknown]
  - Headache [Unknown]
  - Vomiting [Unknown]
  - Product prescribing error [Unknown]
  - Intraocular pressure test abnormal [Unknown]
  - Muscle spasms [Unknown]
  - Back pain [Unknown]
  - Hyperhidrosis [Unknown]
  - Myalgia [Unknown]
  - Inappropriate schedule of product administration [Unknown]
  - Mobility decreased [Unknown]
  - Ocular ischaemic syndrome [Unknown]
  - Blood glucose increased [Unknown]
  - Arthralgia [Unknown]

NARRATIVE: CASE EVENT DATE: 20170510
